FAERS Safety Report 18726597 (Version 4)
Quarter: 2021Q1

REPORT INFORMATION
  Report Type: Report from Study
  Country: US (occurrence: US)
  Receive Date: 20210111
  Receipt Date: 20210219
  Transmission Date: 20210419
  Serious: Yes (Hospitalization)
  Sender: FDA-Public Use
  Company Number: US-JNJFOC-20210104850

PATIENT
  Age: 69 Year
  Sex: Female
  Weight: 79.45 kg

DRUGS (4)
  1. SILDENAFIL CITRATE. [Concomitant]
     Active Substance: SILDENAFIL CITRATE
  2. MACITENTAN [Suspect]
     Active Substance: MACITENTAN
     Indication: PULMONARY HYPERTENSION
     Route: 048
  3. SELEXIPAG [Suspect]
     Active Substance: SELEXIPAG
     Route: 065
  4. SELEXIPAG [Suspect]
     Active Substance: SELEXIPAG
     Indication: PULMONARY HYPERTENSION
     Route: 048
     Dates: start: 20201218, end: 20201226

REACTIONS (13)
  - Vomiting [Not Recovered/Not Resolved]
  - Tremor [Unknown]
  - Movement disorder [Not Recovered/Not Resolved]
  - Dysstasia [Unknown]
  - Nausea [Unknown]
  - Hypersomnia [Unknown]
  - Anuria [Not Recovered/Not Resolved]
  - Dyskinesia [Unknown]
  - Vitreous floaters [Unknown]
  - Acute kidney injury [Unknown]
  - Gait inability [Not Recovered/Not Resolved]
  - Blood potassium increased [Unknown]
  - Diarrhoea [Unknown]

NARRATIVE: CASE EVENT DATE: 2020
